FAERS Safety Report 16996963 (Version 4)
Quarter: 2020Q2

REPORT INFORMATION
  Report Type: Report from Study
  Country: US (occurrence: US)
  Receive Date: 20191106
  Receipt Date: 20200410
  Transmission Date: 20200713
  Serious: Yes (Hospitalization, Other)
  Sender: FDA-Public Use
  Company Number: NVSC2019US022558

PATIENT
  Sex: Male
  Weight: 68.03 kg

DRUGS (4)
  1. TREPROSTINIL. [Suspect]
     Active Substance: TREPROSTINIL
     Indication: PULMONARY ARTERIAL HYPERTENSION
     Dosage: 95 N/KG/MIN
     Route: 042
     Dates: start: 20190514
  2. REVATIO [Concomitant]
     Active Substance: SILDENAFIL CITRATE
     Indication: PRODUCT USED FOR UNKNOWN INDICATION
     Route: 065
  3. TREPROSTINIL. [Suspect]
     Active Substance: TREPROSTINIL
     Dosage: 95 N/KG/MIN
     Route: 042
     Dates: start: 20190514
  4. TREPROSTINIL. [Suspect]
     Active Substance: TREPROSTINIL
     Dosage: 139 NG/KG/MIN
     Route: 042

REACTIONS (4)
  - Pulmonary arterial hypertension [Unknown]
  - Fluid overload [Unknown]
  - Fluid retention [Unknown]
  - Condition aggravated [Unknown]
